FAERS Safety Report 23571922 (Version 1)
Quarter: 2024Q1

REPORT INFORMATION
  Report Type: Spontaneous
  Country: ZA (occurrence: ZA)
  Receive Date: 20240227
  Receipt Date: 20240227
  Transmission Date: 20240410
  Serious: Yes (Other)
  Sender: FDA-Public Use
  Company Number: ZA-PFIZER INC-PV202400024525

PATIENT
  Age: 53 Year
  Sex: Female
  Weight: 68.2 kg

DRUGS (6)
  1. METHOTREXATE SODIUM [Suspect]
     Active Substance: METHOTREXATE SODIUM
     Dosage: UNK
     Dates: start: 20070111
  2. ADALIMUMAB [Suspect]
     Active Substance: ADALIMUMAB\ISOPROPYL ALCOHOL
     Dosage: 40 MG, EVERY OTHER WEEK
     Route: 058
  3. CHLOROQUINE [Suspect]
     Active Substance: CHLOROQUINE
     Dosage: UNK
     Dates: start: 20070209
  4. ARAVA [Suspect]
     Active Substance: LEFLUNOMIDE
     Dosage: UNK
     Dates: start: 20180214
  5. SIMPONI [Suspect]
     Active Substance: GOLIMUMAB
     Dosage: UNK
     Dates: start: 20181207
  6. SULFASALAZINE [Concomitant]
     Active Substance: SULFASALAZINE
     Dosage: UNK
     Dates: start: 20070222, end: 20180412

REACTIONS (4)
  - Condition aggravated [Unknown]
  - Weight increased [Unknown]
  - Liver function test increased [Unknown]
  - Blood alkaline phosphatase increased [Unknown]
